FAERS Safety Report 6892723-X (Version None)
Quarter: 2010Q3

REPORT INFORMATION
  Report Type: 
  Country: None (occurrence: None)
  Receive Date: 20100731
  Receipt Date: 20080829
  Transmission Date: 20110219
  Serious: No
  Sender: FDA-Public Use
  Company Number: US-PFIZER INC-2008074037

PATIENT
  Sex: Female
  Weight: 68.04 kg

DRUGS (2)
  1. GABAPENTIN [Suspect]
     Indication: NEURALGIA
     Route: 048
     Dates: start: 20080101
  2. VITAMINS [Concomitant]

REACTIONS (4)
  - DYSPHONIA [None]
  - HEADACHE [None]
  - OROPHARYNGEAL PAIN [None]
  - PAIN MANAGEMENT [None]
